FAERS Safety Report 9043432 (Version 1)
Quarter: 2013Q1

REPORT INFORMATION
  Report Type: Report from Study
  Country: US (occurrence: US)
  Receive Date: 20130129
  Receipt Date: 20130129
  Transmission Date: 20140127
  Serious: No
  Sender: FDA-Public Use
  Company Number: US-ABBOTT-12P-163-0911136-00

PATIENT
  Age: 58 Year
  Sex: Male

DRUGS (2)
  1. HUMIRA 40 MG/0.8 ML PEN [Suspect]
     Indication: PSORIASIS
  2. AMLODIPINE BENAZ [Concomitant]
     Indication: BLOOD PRESSURE
     Dosage: 5/20 MG DAILY

REACTIONS (5)
  - Injection site pain [Recovering/Resolving]
  - Injection site erythema [Recovering/Resolving]
  - Injection site inflammation [Recovering/Resolving]
  - Injection site haemorrhage [Recovering/Resolving]
  - Wrong technique in drug usage process [Recovering/Resolving]
